FAERS Safety Report 5782071-3 (Version None)
Quarter: 2008Q2

REPORT INFORMATION
  Report Type: 
  Country: None (occurrence: None)
  Receive Date: 20080618
  Receipt Date: 20080609
  Transmission Date: 20081010
  Serious: Yes (Hospitalization)
  Sender: FDA-Public Use
  Company Number: GXKR2008IT05297

PATIENT
  Sex: Male

DRUGS (1)
  1. CLARITHROMYCIN [Suspect]

REACTIONS (2)
  - HAEMATURIA [None]
  - HEPATITIS [None]
